FAERS Safety Report 6997661-X (Version None)
Quarter: 2010Q3

REPORT INFORMATION
  Report Type: 
  Country: None (occurrence: None)
  Receive Date: 20100918
  Receipt Date: 20091117
  Transmission Date: 20110219
  Serious: No
  Sender: FDA-Public Use
  Company Number: US-WYE-H12194709

PATIENT
  Sex: Female
  Weight: 61.74 kg

DRUGS (4)
  1. PRISTIQ [Suspect]
     Indication: ANXIETY
     Route: 048
     Dates: start: 20090101
  2. PRISTIQ [Suspect]
     Indication: PANIC DISORDER
  3. XANAX [Concomitant]
  4. FOSAMAX [Concomitant]

REACTIONS (4)
  - ANXIETY [None]
  - BLOOD PRESSURE INCREASED [None]
  - CONDITION AGGRAVATED [None]
  - MOTION SICKNESS [None]
